FAERS Safety Report 6589602-4 (Version None)
Quarter: 2010Q1

REPORT INFORMATION
  Report Type: 
  Country: None (occurrence: None)
  Receive Date: 20100218
  Receipt Date: 20100208
  Transmission Date: 20100710
  Serious: Yes (Other)
  Sender: FDA-Public Use
  Company Number: TR-ABBOTT-10P-161-0624592-00

PATIENT
  Age: 45 Year
  Sex: Female

DRUGS (1)
  1. TARKA [Suspect]
     Indication: HYPERTENSION
     Dosage: 4MG/240MG DAILY
     Route: 048
     Dates: start: 20100125, end: 20100130

REACTIONS (1)
  - ARRHYTHMIA [None]
